FAERS Safety Report 5406921-5 (Version None)
Quarter: 2007Q3

REPORT INFORMATION
  Report Type: 
  Country: None (occurrence: None)
  Receive Date: 20070807
  Receipt Date: 20070730
  Transmission Date: 20080115
  Serious: Yes (Hospitalization, Other)
  Sender: FDA-Public Use
  Company Number: US-AMGEN-US202583

PATIENT
  Sex: Female

DRUGS (2)
  1. ENBREL [Suspect]
     Indication: BEHCET'S SYNDROME
     Route: 058
     Dates: start: 20030101, end: 20070101
  2. METHOTREXATE [Concomitant]
     Dates: start: 20030101, end: 20061031

REACTIONS (5)
  - ARTHRALGIA [None]
  - JOINT SWELLING [None]
  - MUSCLE SPASMS [None]
  - NEURILEMMOMA [None]
  - PARATHYROID TUMOUR BENIGN [None]
